FAERS Safety Report 5228231-1 (Version None)
Quarter: 2007Q1

REPORT INFORMATION
  Report Type: 
  Country: None (occurrence: None)
  Receive Date: 20070205
  Receipt Date: 20070124
  Transmission Date: 20070707
  Serious: Yes (Hospitalization)
  Sender: FDA-Public Use
  Company Number: HQWYE436124JAN07

PATIENT
  Age: 84 Year
  Sex: Female

DRUGS (6)
  1. CORDARONE [Suspect]
     Indication: CARDIAC DISORDER
     Route: 048
  2. RISPERDAL [Concomitant]
     Indication: ABNORMAL BEHAVIOUR
     Route: 048
  3. HEMIGOXINE NATIVELLE [Concomitant]
     Indication: CARDIAC DISORDER
     Dosage: 0.125 MG; FREQUENCY NOT SPECIFIED
     Route: 048
  4. VASTAREL [Concomitant]
     Indication: TINNITUS
     Route: 048
  5. COUMADIN [Interacting]
     Indication: CARDIAC DISORDER
     Route: 048
     Dates: end: 20060901
  6. INIPOMP [Concomitant]
     Route: 048

REACTIONS (4)
  - ABDOMINAL PAIN [None]
  - DRUG INTERACTION [None]
  - HAEMATOMA [None]
  - INTERNATIONAL NORMALISED RATIO INCREASED [None]
